FAERS Safety Report 10065021 (Version 1)
Quarter: 2014Q1

REPORT INFORMATION
  Report Type: Spontaneous
  Country: US (occurrence: None)
  Receive Date: 20140328
  Receipt Date: 20140328
  Transmission Date: 20141002
  Serious: No
  Sender: FDA-Public Use
  Company Number: 1000052429

PATIENT
  Age: 15 Year
  Sex: Male

DRUGS (1)
  1. LINZESS [Suspect]
     Route: 048
     Dates: start: 20131222, end: 20131223

REACTIONS (1)
  - Accidental exposure to product [None]
